FAERS Safety Report 17020481 (Version 1)
Quarter: 2019Q4

REPORT INFORMATION
  Report Type: Spontaneous
  Country: US (occurrence: US)
  Receive Date: 20191007
  Receipt Date: 20191007
  Transmission Date: 20200122
  Serious: Yes (Hospitalization)
  Sender: FDA-Public Use
  Company Number: None

PATIENT
  Age: 5 Year
  Sex: Male

DRUGS (10)
  1. MONTELUKAST [Concomitant]
     Active Substance: MONTELUKAST SODIUM
  2. PULMOZYME [Suspect]
     Active Substance: DORNASE ALFA
     Indication: CYSTIC FIBROSIS
     Route: 055
     Dates: start: 20150413
  3. URSODIOL. [Concomitant]
     Active Substance: URSODIOL
  4. ALBUTEROL NEB SLN [Concomitant]
  5. CREON [Concomitant]
     Active Substance: PANCRELIPASE AMYLASE\PANCRELIPASE LIPASE\PANCRELIPASE PROTEASE
  6. AQUADEK [Concomitant]
  7. BETHKIS [Concomitant]
     Active Substance: TOBRAMYCIN
  8. FLOVENT [Concomitant]
     Active Substance: FLUTICASONE PROPIONATE
  9. RANITIDINE. [Concomitant]
     Active Substance: RANITIDINE
  10. CYPROHEPTADINE. [Concomitant]
     Active Substance: CYPROHEPTADINE

REACTIONS (1)
  - Pneumonia [None]

NARRATIVE: CASE EVENT DATE: 20190904
